FAERS Safety Report 5488538-X (Version None)
Quarter: 2007Q4

REPORT INFORMATION
  Report Type: 
  Country: None (occurrence: None)
  Receive Date: 20071016
  Receipt Date: 20071009
  Transmission Date: 20080405
  Serious: Yes (Hospitalization)
  Sender: FDA-Public Use
  Company Number: FR-ASTRAZENECA-2007CG01439

PATIENT
  Age: 29914 Day
  Sex: Male

DRUGS (12)
  1. ATACAND [Suspect]
     Route: 048
     Dates: start: 20070902, end: 20070903
  2. LEPONEX [Suspect]
     Dosage: FROM 12 TO 25 MG DAILY
     Route: 048
     Dates: start: 20070830, end: 20070831
  3. LEPONEX [Suspect]
     Dosage: FROM 12 TO 25 MG DAILY
     Route: 048
     Dates: start: 20070902, end: 20070903
  4. STABLON [Suspect]
     Route: 048
     Dates: start: 20070831, end: 20070903
  5. MODOPAR [Suspect]
     Dosage: 50 + 12.5 MG TID
     Route: 048
     Dates: end: 20070903
  6. TRIATEC [Concomitant]
     Route: 048
     Dates: end: 20070903
  7. XATRAL [Concomitant]
     Route: 048
     Dates: end: 20070903
  8. DIGOXIN [Concomitant]
     Route: 048
     Dates: start: 20070821
  9. MINISINTROM [Concomitant]
     Dates: start: 20070820
  10. LOXAPAC [Concomitant]
     Dates: start: 20070820, end: 20070829
  11. INDAPAMIDE [Concomitant]
     Dates: start: 20070821, end: 20070831
  12. LANSOYL [Concomitant]
     Dates: start: 20070823, end: 20070831

REACTIONS (2)
  - BRADYCARDIA [None]
  - LOSS OF CONSCIOUSNESS [None]
